FAERS Safety Report 7989917-9 (Version None)
Quarter: 2011Q4

REPORT INFORMATION
  Report Type: 
  Country: None (occurrence: None)
  Receive Date: 20111219
  Receipt Date: 20110823
  Transmission Date: 20120403
  Serious: No
  Sender: FDA-Public Use
  Company Number: US-ASTRAZENECA-2011SE36741

PATIENT
  Age: 64 Year
  Sex: Female

DRUGS (5)
  1. NEXIUM [Concomitant]
  2. CRESTOR [Suspect]
     Route: 048
  3. DELSYM [Concomitant]
  4. SYMBICORT [Concomitant]
  5. CRESTOR [Suspect]
     Route: 048

REACTIONS (2)
  - DYSPNOEA [None]
  - DRUG HYPERSENSITIVITY [None]
